FAERS Safety Report 20058656 (Version 1)
Quarter: 2021Q4

REPORT INFORMATION
  Report Type: Spontaneous
  Country: US (occurrence: None)
  Receive Date: 20211111
  Receipt Date: 20211111
  Transmission Date: 20220303
  Serious: No
  Sender: FDA-Public Use
  Company Number: None

PATIENT
  Sex: Male
  Weight: 115 kg

DRUGS (2)
  1. ERBITUX [Suspect]
     Active Substance: CETUXIMAB
  2. TAXOTERE [Suspect]
     Active Substance: DOCETAXEL

REACTIONS (6)
  - Mouth swelling [None]
  - Lip swelling [None]
  - Lip scab [None]
  - Erythema [None]
  - Dysphagia [None]
  - Drug ineffective [None]

NARRATIVE: CASE EVENT DATE: 20211026
